FAERS Safety Report 8837174 (Version 1)
Quarter: 2012Q4

REPORT INFORMATION
  Report Type: 
  Country: SE (occurrence: SE)
  Receive Date: 20121012
  Receipt Date: 20121012
  Transmission Date: 20130627
  Serious: Yes (Hospitalization)
  Sender: FDA-Public Use
  Company Number: SE-PURDUE-GBR-2012-0011614

PATIENT
  Age: 78 Year
  Sex: Female

DRUGS (2)
  1. NORSPAN [Suspect]
     Indication: ARTHRALGIA
     Dosage: UNK
     Route: 062
     Dates: start: 201209
  2. PANOCOD [Suspect]
     Indication: ARTHRALGIA
     Dosage: UNK
     Route: 065
     Dates: end: 20120805

REACTIONS (3)
  - Hyponatraemia [Recovered/Resolved]
  - Fatigue [Recovered/Resolved]
  - Vomiting [Recovered/Resolved]
